FAERS Safety Report 12859687 (Version 2)
Quarter: 2016Q4

REPORT INFORMATION
  Report Type: Report from Study
  Country: JP (occurrence: JP)
  Receive Date: 20161018
  Receipt Date: 20161111
  Transmission Date: 20170207
  Serious: Yes (Other)
  Sender: FDA-Public Use
  Company Number: JP-B.I. PHARMACEUTICALS,INC./RIDGEFIELD-2016-BI-51844BI

PATIENT
  Age: 76 Year
  Sex: Male
  Weight: 56 kg

DRUGS (14)
  1. CELECOX [Concomitant]
     Active Substance: CELECOXIB
     Indication: SPINAL COLUMN STENOSIS
     Dosage: STRENGTH: 100 MG
     Route: 048
     Dates: start: 20160602
  2. URIEF [Concomitant]
     Active Substance: SILODOSIN
     Indication: HYPERTONIC BLADDER
     Route: 048
     Dates: start: 20160517
  3. CARBOCISTEINE [Concomitant]
     Active Substance: CARBOCYSTEINE
     Indication: CHRONIC OBSTRUCTIVE PULMONARY DISEASE
     Dosage: STRENGTH-500 MG TOWA
     Route: 048
     Dates: start: 20131029
  4. NEUROTROPIN [Concomitant]
     Active Substance: NEUROTROPIN
     Indication: SPINAL COLUMN STENOSIS
     Dosage: STRENGTH-3.6 N.U. INJECTION
     Route: 042
     Dates: start: 20160607, end: 20160609
  5. NEUROTROPIN [Concomitant]
     Active Substance: NEUROTROPIN
     Dosage: STRENGTH-4NU, DAILY DOSE 16NU
     Route: 042
     Dates: start: 20160609
  6. SULTANOL [Concomitant]
     Active Substance: ALBUTEROL SULFATE
     Indication: CHRONIC OBSTRUCTIVE PULMONARY DISEASE
     Dosage: INHALER 100MICROGRAM
     Route: 055
     Dates: start: 20160525
  7. BLINDED TIOTROPIUM BROMIDE+OLODATEROL [Suspect]
     Active Substance: OLODATEROL HYDROCHLORIDE\TIOTROPIUM BROMIDE MONOHYDRATE
     Indication: CHRONIC OBSTRUCTIVE PULMONARY DISEASE
     Route: 055
     Dates: start: 20160610, end: 20160722
  8. MOHRUS [Concomitant]
     Active Substance: KETOPROFEN
     Indication: SPINAL COLUMN STENOSIS
     Dosage: TRADENAME MOHRUS PAP 60MG
     Route: 061
     Dates: start: 20160602
  9. PRAVASTATIN NA [Concomitant]
     Active Substance: PRAVASTATIN SODIUM
     Indication: HYPERLIPIDAEMIA
     Route: 048
     Dates: start: 20110621
  10. BRONUCK [Concomitant]
     Active Substance: BROMFENAC SODIUM
     Indication: CHORIORETINOPATHY
     Dosage: FORMULATION: OPHTHAMIC SOLUTION 0.1 PERCENT,
     Route: 031
     Dates: start: 20160525
  11. CALBLOCK [Concomitant]
     Active Substance: AZELNIDIPINE
     Indication: HYPERTENSION
     Route: 048
     Dates: start: 20110621
  12. FLUTIDE [Concomitant]
     Active Substance: FLUTICASONE PROPIONATE
     Indication: CHRONIC OBSTRUCTIVE PULMONARY DISEASE
     Dosage: TRADE NAME: FLUTIDE DISKUS
     Route: 055
     Dates: start: 20160517
  13. FLUMETHOLON [Concomitant]
     Active Substance: FLUOROMETHOLONE
     Indication: CHORIORETINOPATHY
     Dosage: FORMULATION: OPHTHAMIC SSUSPENSION 0.1 PERCENT,
     Route: 031
     Dates: start: 20160525
  14. AVOLVE [Concomitant]
     Active Substance: DUTASTERIDE
     Indication: HYPERTONIC BLADDER
     Route: 048
     Dates: start: 20160712

REACTIONS (2)
  - Prostate cancer [Not Recovered/Not Resolved]
  - Metastases to bone [Not Recovered/Not Resolved]

NARRATIVE: CASE EVENT DATE: 20160805
